FAERS Safety Report 18376956 (Version 1)
Quarter: 2020Q4

REPORT INFORMATION
  Report Type: Report from Study
  Country: AU (occurrence: AU)
  Receive Date: 20201013
  Receipt Date: 20201013
  Transmission Date: 20210114
  Serious: Yes (Other)
  Sender: FDA-Public Use
  Company Number: AU-MYLANLABS-2020M1085490

PATIENT

DRUGS (2)
  1. ERYTHROMYCIN. [Suspect]
     Active Substance: ERYTHROMYCIN
     Indication: PRETERM PREMATURE RUPTURE OF MEMBRANES
     Dosage: 250 MILLIGRAM, QID
     Route: 064
  2. ERYTHROMYCIN. [Suspect]
     Active Substance: ERYTHROMYCIN
     Indication: ANTIBIOTIC THERAPY

REACTIONS (4)
  - Pathogen resistance [Unknown]
  - Escherichia infection [Unknown]
  - Foetal exposure during pregnancy [Recovered/Resolved]
  - Sepsis neonatal [Unknown]
